FAERS Safety Report 23165034 (Version 1)
Quarter: 2023Q4

REPORT INFORMATION
  Report Type: Spontaneous
  Country: US (occurrence: US)
  Receive Date: 20231109
  Receipt Date: 20231109
  Transmission Date: 20240110
  Serious: No
  Sender: FDA-Public Use
  Company Number: US-009507513-2310USA003091

PATIENT
  Age: 52 Year
  Sex: Male

DRUGS (9)
  1. KEYTRUDA [Suspect]
     Active Substance: PEMBROLIZUMAB
     Indication: Palliative care
  2. KEYTRUDA [Suspect]
     Active Substance: PEMBROLIZUMAB
     Indication: Pleomorphic adenoma
  3. KEYTRUDA [Suspect]
     Active Substance: PEMBROLIZUMAB
     Indication: Non-small cell lung cancer
  4. CARBOPLATIN [Suspect]
     Active Substance: CARBOPLATIN
     Indication: Palliative care
  5. CARBOPLATIN [Suspect]
     Active Substance: CARBOPLATIN
     Indication: Pleomorphic adenoma
  6. CARBOPLATIN [Suspect]
     Active Substance: CARBOPLATIN
     Indication: Non-small cell lung cancer
  7. PACLITAXEL [Suspect]
     Active Substance: PACLITAXEL
     Indication: Palliative care
  8. PACLITAXEL [Suspect]
     Active Substance: PACLITAXEL
     Indication: Pleomorphic adenoma
  9. PACLITAXEL [Suspect]
     Active Substance: PACLITAXEL
     Indication: Non-small cell lung cancer

REACTIONS (1)
  - Product use in unapproved indication [Unknown]
